FAERS Safety Report 5145160-2 (Version None)
Quarter: 2006Q4

REPORT INFORMATION
  Report Type: 
  Country: None (occurrence: None)
  Receive Date: 20061107
  Receipt Date: 20060904
  Transmission Date: 20070319
  Serious: Yes (Death, Hospitalization)
  Sender: FDA-Public Use
  Company Number: AU-ROCHE-461840

PATIENT
  Age: 68 Year
  Sex: Male

DRUGS (4)
  1. CAPECITABINE [Suspect]
     Dosage: PROTOCOL DOSE. GIVEN ON DAYS 1-14 OF 21 DAY CYCLE.
     Route: 048
     Dates: start: 20060630
  2. BEVACIZUMAB [Suspect]
     Dosage: DOSE AS PER PROTOCOL.
     Route: 042
     Dates: start: 20060630
  3. ATENOLOL [Concomitant]
     Indication: HYPERTENSION
     Route: 048
     Dates: start: 20060912, end: 20060918
  4. KARVEZIDE [Concomitant]
     Indication: HYPERTENSION
     Route: 048
     Dates: start: 20060912, end: 20060918

REACTIONS (3)
  - INTESTINAL OBSTRUCTION [None]
  - NEUROPATHY PERIPHERAL [None]
  - SEPSIS [None]
